FAERS Safety Report 16938565 (Version 1)
Quarter: 2019Q4

REPORT INFORMATION
  Report Type: Spontaneous
  Country: US (occurrence: US)
  Receive Date: 20191019
  Receipt Date: 20191019
  Transmission Date: 20200122
  Serious: No
  Sender: FDA-Public Use
  Company Number: US-AMAG PHARMACEUTICALS, INC.-AMAG201905029

PATIENT
  Sex: Female

DRUGS (1)
  1. VYLEESI [Suspect]
     Active Substance: BREMELANOTIDE ACETATE
     Indication: PRODUCT USED FOR UNKNOWN INDICATION
     Route: 058

REACTIONS (6)
  - Disturbance in sexual arousal [Unknown]
  - Paraesthesia [Unknown]
  - Nausea [Unknown]
  - Flushing [Unknown]
  - Piloerection [Unknown]
  - Vulvovaginal discomfort [Unknown]
